FAERS Safety Report 4558042-1 (Version None)
Quarter: 2005Q1

REPORT INFORMATION
  Report Type: 
  Country: None (occurrence: None)
  Receive Date: 20050121
  Receipt Date: 20040708
  Transmission Date: 20050727
  Serious: No
  Sender: FDA-Public Use
  Company Number: US-BRISTOL-MYERS SQUIBB COMPANY-12635066

PATIENT
  Age: 41 Year
  Sex: Male
  Weight: 107 kg

DRUGS (3)
  1. SERZONE [Suspect]
     Indication: DEPRESSION
     Dosage: 150 MG TO 200 MG TWICE DAILY
     Route: 048
     Dates: start: 19970109, end: 20020219
  2. MULTI-VITAMINS [Concomitant]
  3. ASPIRIN [Concomitant]
     Indication: INTERVERTEBRAL DISC PROTRUSION

REACTIONS (3)
  - ALANINE AMINOTRANSFERASE INCREASED [None]
  - HEPATIC STEATOSIS [None]
  - PRURITUS [None]
